FAERS Safety Report 18200050 (Version 1)
Quarter: 2020Q3

REPORT INFORMATION
  Report Type: Spontaneous
  Country: AR (occurrence: AR)
  Receive Date: 20200827
  Receipt Date: 20200827
  Transmission Date: 20201103
  Serious: Yes (Other)
  Sender: FDA-Public Use
  Company Number: AR-AMGEN-ARGSP2020138177

PATIENT
  Age: 39 Year
  Sex: Female

DRUGS (1)
  1. ENBREL [Suspect]
     Active Substance: ETANERCEPT
     Indication: RHEUMATOID ARTHRITIS
     Dosage: 50 MG, WEEKLY
     Route: 065
     Dates: start: 20181030

REACTIONS (8)
  - Haematoma [Unknown]
  - Headache [Unknown]
  - Haemorrhage [Unknown]
  - Periorbital swelling [Unknown]
  - Feeling abnormal [Unknown]
  - Decreased immune responsiveness [Unknown]
  - Oedema [Unknown]
  - Condition aggravated [Unknown]

NARRATIVE: CASE EVENT DATE: 201912
